FAERS Safety Report 10960546 (Version 3)
Quarter: 2015Q2

REPORT INFORMATION
  Report Type: Report from Study
  Country: JP (occurrence: JP)
  Receive Date: 20150327
  Receipt Date: 20150617
  Transmission Date: 20150821
  Serious: Yes (Death, Hospitalization)
  Sender: FDA-Public Use
  Company Number: JP-SA-2015SA037414

PATIENT
  Age: 15 Year
  Sex: Male
  Weight: 73.4 kg

DRUGS (8)
  1. ZOSYN [Concomitant]
     Active Substance: PIPERACILLIN SODIUM\TAZOBACTAM SODIUM
     Indication: INFECTION PROPHYLAXIS
     Dates: start: 20121110, end: 20121110
  2. FLUDARA [Suspect]
     Active Substance: FLUDARABINE PHOSPHATE
     Indication: EPSTEIN-BARR VIRUS INFECTION
     Route: 042
     Dates: start: 20121109, end: 20121114
  3. MELPHALAN [Suspect]
     Active Substance: MELPHALAN
     Indication: EPSTEIN-BARR VIRUS INFECTION
     Route: 065
     Dates: start: 20121107, end: 20121107
  4. METHYLPREDNISOLONE. [Concomitant]
     Active Substance: METHYLPREDNISOLONE
     Indication: PROPHYLAXIS
     Dates: start: 20121108, end: 20121109
  5. FINIBAX [Concomitant]
     Active Substance: DORIPENEM MONOHYDRATE
     Indication: INFECTION PROPHYLAXIS
     Dates: start: 20121110, end: 20121128
  6. THYMOGLOBULINE [Suspect]
     Active Substance: LAPINE T-LYMPHOCYTE IMMUNE GLOBULIN
     Indication: BONE MARROW CONDITIONING REGIMEN
     Route: 041
     Dates: start: 20121108, end: 20121109
  7. MELPHALAN [Suspect]
     Active Substance: MELPHALAN
     Indication: EPSTEIN-BARR VIRUS INFECTION
     Route: 065
     Dates: start: 20121110, end: 20121110
  8. MELPHALAN [Suspect]
     Active Substance: MELPHALAN
     Indication: EPSTEIN-BARR VIRUS INFECTION
     Route: 065
     Dates: start: 20121113, end: 20121113

REACTIONS (2)
  - Thrombotic microangiopathy [Fatal]
  - Hyperthermia [Recovering/Resolving]

NARRATIVE: CASE EVENT DATE: 20121110
